FAERS Safety Report 5136395-3 (Version None)
Quarter: 2006Q4

REPORT INFORMATION
  Report Type: 
  Country: None (occurrence: None)
  Receive Date: 20061020
  Receipt Date: 20061009
  Transmission Date: 20070319
  Serious: Yes (Hospitalization)
  Sender: FDA-Public Use
  Company Number: 2006BI014877

PATIENT
  Age: 57 Year
  Sex: Female
  Weight: 70 kg

DRUGS (5)
  1. AVONEX [Suspect]
     Indication: MULTIPLE SCLEROSIS
     Dosage: 30 UG; QW; IM
     Route: 030
  2. EFFEXOR [Concomitant]
  3. CALTRATE [Concomitant]
  4. TRAMADOL HCL [Concomitant]
  5. EPILIM [Concomitant]

REACTIONS (6)
  - CHILLS [None]
  - FEELING COLD [None]
  - JOINT RANGE OF MOTION DECREASED [None]
  - MIDDLE INSOMNIA [None]
  - NASOPHARYNGITIS [None]
  - PARALYSIS [None]
